FAERS Safety Report 17123265 (Version 1)
Quarter: 2019Q4

REPORT INFORMATION
  Report Type: Report from Study
  Country: PK (occurrence: PK)
  Receive Date: 20191206
  Receipt Date: 20191206
  Transmission Date: 20200122
  Serious: Yes (Death)
  Sender: FDA-Public Use
  Company Number: NVSC2019PK061219

PATIENT
  Age: 60 Year
  Sex: Male

DRUGS (1)
  1. TASIGNA [Suspect]
     Active Substance: NILOTINIB
     Indication: CHRONIC MYELOID LEUKAEMIA
     Dosage: 2 DF, BID (800 MG)
     Route: 048
     Dates: start: 20120611

REACTIONS (1)
  - Death [Fatal]

NARRATIVE: CASE EVENT DATE: 20190722
